FAERS Safety Report 7260624-3 (Version None)
Quarter: 2011Q1

REPORT INFORMATION
  Report Type: 
  Country: None (occurrence: None)
  Receive Date: 20110130
  Receipt Date: 20101109
  Transmission Date: 20110831
  Serious: No
  Sender: FDA-Public Use
  Company Number: US-ABBOTT-10P-163-0684703-00

PATIENT
  Sex: Female
  Weight: 68.554 kg

DRUGS (6)
  1. ATENOLOL [Concomitant]
     Indication: HYPERTENSION
  2. RANITIDINE [Concomitant]
     Indication: GASTROOESOPHAGEAL REFLUX DISEASE
  3. DIOVAN [Concomitant]
     Indication: HYPERTENSION
  4. NORTRIPTYLINE HCL [Concomitant]
     Indication: DEPRESSION
  5. HUMIRA [Suspect]
     Indication: PSORIASIS
     Dates: start: 20040101
  6. HYDROCHLOROTHIAZIDE [Concomitant]
     Indication: FLUID RETENTION

REACTIONS (3)
  - OEDEMA PERIPHERAL [None]
  - JOINT SWELLING [None]
  - SKIN DISCOLOURATION [None]
